FAERS Safety Report 21992365 (Version 1)
Quarter: 2023Q1

REPORT INFORMATION
  Report Type: Spontaneous
  Country: AU (occurrence: AU)
  Receive Date: 20230215
  Receipt Date: 20230215
  Transmission Date: 20230418
  Serious: Yes (Other)
  Sender: FDA-Public Use
  Company Number: AU-BAXTER-2023BAX012457

PATIENT
  Sex: Male

DRUGS (31)
  1. DOXORUBICIN [Suspect]
     Active Substance: DOXORUBICIN
     Indication: Epstein-Barr virus infection
     Dosage: AS A PART OF R EPOCH X1
     Route: 065
  2. DOXORUBICIN [Suspect]
     Active Substance: DOXORUBICIN
     Indication: Richter^s syndrome
     Dosage: AS A PART OF R CHOP, COMPLETED IN MAY2019
     Route: 065
  3. DOXORUBICIN [Suspect]
     Active Substance: DOXORUBICIN
     Indication: Plasmablastic lymphoma
  4. DOXORUBICIN [Suspect]
     Active Substance: DOXORUBICIN
     Indication: Diffuse large B-cell lymphoma
  5. CYCLOPHOSPHAMIDE [Suspect]
     Active Substance: CYCLOPHOSPHAMIDE
     Indication: Epstein-Barr virus infection
     Dosage: AS A PART OF FCR, COMPLETED IN JAN2017
     Route: 065
  6. CYCLOPHOSPHAMIDE [Suspect]
     Active Substance: CYCLOPHOSPHAMIDE
     Indication: Richter^s syndrome
     Dosage: AS A PART OF R CHOP, COMPLETED IN MAY2019
     Route: 065
  7. CYCLOPHOSPHAMIDE [Suspect]
     Active Substance: CYCLOPHOSPHAMIDE
     Indication: Chronic lymphocytic leukaemia
  8. IFOSFAMIDE [Suspect]
     Active Substance: IFOSFAMIDE
     Indication: Epstein-Barr virus infection
     Dosage: AS A PART OF R VIC
     Route: 065
  9. IFOSFAMIDE [Suspect]
     Active Substance: IFOSFAMIDE
     Indication: Plasmablastic lymphoma
  10. IFOSFAMIDE [Suspect]
     Active Substance: IFOSFAMIDE
     Indication: Diffuse large B-cell lymphoma
  11. IFOSFAMIDE [Suspect]
     Active Substance: IFOSFAMIDE
     Indication: Richter^s syndrome
  12. RITUXIMAB [Suspect]
     Active Substance: RITUXIMAB
     Indication: Chronic lymphocytic leukaemia
     Dosage: AS A PART OF FCR, COMPLETED IN JAN2017
     Route: 065
  13. RITUXIMAB [Suspect]
     Active Substance: RITUXIMAB
     Indication: Epstein-Barr virus infection
     Dosage: AS A PART OF R EPOCH X1
     Route: 065
  14. RITUXIMAB [Suspect]
     Active Substance: RITUXIMAB
     Indication: Plasmablastic lymphoma
     Dosage: AS A PART OF R VIC
     Route: 065
  15. RITUXIMAB [Suspect]
     Active Substance: RITUXIMAB
     Indication: Diffuse large B-cell lymphoma
     Dosage: AS A PART OF R CHOP, COMPLETED IN MAY-2019
     Route: 065
  16. RITUXIMAB [Suspect]
     Active Substance: RITUXIMAB
     Indication: Richter^s syndrome
  17. VINCRISTINE [Suspect]
     Active Substance: VINCRISTINE
     Indication: Epstein-Barr virus infection
     Dosage: AS A PART OF R EPOCH X1
     Route: 065
  18. VINCRISTINE [Suspect]
     Active Substance: VINCRISTINE
     Indication: Plasmablastic lymphoma
     Dosage: AS A PART OF R VIC
     Route: 065
  19. VINCRISTINE [Suspect]
     Active Substance: VINCRISTINE
     Indication: Diffuse large B-cell lymphoma
     Dosage: AS A PART OF R CHOP, COMPLETED IN MAY2019
     Route: 065
  20. VINCRISTINE [Suspect]
     Active Substance: VINCRISTINE
     Indication: Richter^s syndrome
  21. PREDNISONE [Suspect]
     Active Substance: PREDNISONE
     Indication: Epstein-Barr virus infection
     Dosage: AS A PART OF R CHOP, COMPLETED IN MAY2019
     Route: 065
  22. PREDNISONE [Suspect]
     Active Substance: PREDNISONE
     Indication: Richter^s syndrome
  23. FLUDARABINE [Suspect]
     Active Substance: FLUDARABINE PHOSPHATE
     Indication: Chronic lymphocytic leukaemia
     Dosage: AS A PART OF FCR, COMPLETED IN JAN2017
     Route: 065
  24. ETOPOSIDE PHOSPHATE [Suspect]
     Active Substance: ETOPOSIDE PHOSPHATE
     Indication: Epstein-Barr virus infection
     Dosage: AS A PART OF R EPOCH X1
     Route: 065
  25. ETOPOSIDE PHOSPHATE [Suspect]
     Active Substance: ETOPOSIDE PHOSPHATE
     Indication: Plasmablastic lymphoma
  26. ETOPOSIDE PHOSPHATE [Suspect]
     Active Substance: ETOPOSIDE PHOSPHATE
     Indication: Diffuse large B-cell lymphoma
  27. ETOPOSIDE PHOSPHATE [Suspect]
     Active Substance: ETOPOSIDE PHOSPHATE
     Indication: Richter^s syndrome
  28. CARBOPLATIN [Suspect]
     Active Substance: CARBOPLATIN
     Indication: Epstein-Barr virus infection
     Dosage: AS A PART OF R VIC
     Route: 065
  29. CARBOPLATIN [Suspect]
     Active Substance: CARBOPLATIN
     Indication: Plasmablastic lymphoma
  30. CARBOPLATIN [Suspect]
     Active Substance: CARBOPLATIN
     Indication: Diffuse large B-cell lymphoma
  31. CARBOPLATIN [Suspect]
     Active Substance: CARBOPLATIN
     Indication: Richter^s syndrome

REACTIONS (14)
  - Richter^s syndrome [Unknown]
  - Plasmablastic lymphoma [Unknown]
  - Diffuse large B-cell lymphoma [Unknown]
  - Aspergillus infection [Unknown]
  - Epstein-Barr virus infection [Unknown]
  - Pneumocystis jirovecii pneumonia [Unknown]
  - Cardiac failure congestive [Unknown]
  - Neutropenia [Unknown]
  - Gastrointestinal tract adenoma [Unknown]
  - Hepatic lesion [Unknown]
  - Malaise [Unknown]
  - Weight decreased [Unknown]
  - Nausea [Unknown]
  - Diarrhoea [Unknown]
